FAERS Safety Report 19014212 (Version 1)
Quarter: 2021Q1

REPORT INFORMATION
  Report Type: Spontaneous
  Country: US (occurrence: US)
  Receive Date: 20210316
  Receipt Date: 20210316
  Transmission Date: 20210420
  Serious: Yes (Hospitalization)
  Sender: FDA-Public Use
  Company Number: US-ASTRAZENECA-2021A123506

PATIENT
  Age: 35 Year
  Sex: Male
  Weight: 83.9 kg

DRUGS (8)
  1. SYMBICORT [Suspect]
     Active Substance: BUDESONIDE\FORMOTEROL FUMARATE DIHYDRATE
     Indication: BRONCHITIS
     Dosage: 80/4.5MCG, 2 PUFFS TWO TIMES A DAY
     Route: 055
     Dates: start: 202002
  2. FASENRA [Suspect]
     Active Substance: BENRALIZUMAB
     Indication: CHRONIC OBSTRUCTIVE PULMONARY DISEASE
     Dosage: 30.0MG UNKNOWN
     Route: 058
     Dates: start: 20210225
  3. SYMBICORT [Suspect]
     Active Substance: BUDESONIDE\FORMOTEROL FUMARATE DIHYDRATE
     Indication: ASTHMA
     Dosage: 80/4.5MCG, 2 PUFFS TWO TIMES A DAY
     Route: 055
     Dates: start: 202002
  4. IPRATROPIUM ALBUTEROL NEBULIZER [Concomitant]
     Indication: ASTHMA
     Route: 055
  5. ALBUTEROL. [Concomitant]
     Active Substance: ALBUTEROL
     Dosage: 90.0UG EVERY 4 ? 6 HOURS
     Route: 055
     Dates: start: 201910
  6. SPIRIVA [Concomitant]
     Active Substance: TIOTROPIUM BROMIDE MONOHYDRATE
     Indication: ASTHMA
     Route: 055
     Dates: start: 20210126
  7. ALBUTEROL NEBULIZER [Concomitant]
     Active Substance: ALBUTEROL
     Indication: ASTHMA
     Route: 055
     Dates: start: 201906
  8. FASENRA [Suspect]
     Active Substance: BENRALIZUMAB
     Indication: ASTHMA
     Dosage: 30.0MG UNKNOWN
     Route: 058
     Dates: start: 20210225

REACTIONS (2)
  - Nausea [Recovered/Resolved]
  - Asthma [Recovered/Resolved]

NARRATIVE: CASE EVENT DATE: 202002
